FAERS Safety Report 4607953-7 (Version None)
Quarter: 2005Q2

REPORT INFORMATION
  Report Type: 
  Country: None (occurrence: None)
  Receive Date: 20050303
  Receipt Date: 20041026
  Transmission Date: 20051028
  Serious: No
  Sender: FDA-Public Use
  Company Number: 209836

PATIENT
  Age: 55 Year
  Sex: Female
  Weight: 68.9 kg

DRUGS (12)
  1. XOLAIR [Suspect]
     Indication: FOOD ALLERGY
     Dosage: 375 MG, Q2W, INTRAMUSCULAR
     Route: 030
     Dates: start: 20041020, end: 20041020
  2. PREDNISONE [Concomitant]
  3. FLONASE [Concomitant]
  4. COMBIVENT (IPRATROPIUM BROMIDE, ALBUTEROL, ALBUTEROL SULFATE) [Concomitant]
  5. XOPENEX [Concomitant]
  6. FOSAMAX [Concomitant]
  7. SINGULAIR [Concomitant]
  8. CLARITIN [Concomitant]
  9. ADVAIR (SALMETEROL XINAFOATE, FLUTICASONE PROPIONATE) [Concomitant]
  10. MUCINEX (GUAIFENESIN) [Concomitant]
  11. BENADRYL [Concomitant]
  12. ATROVENT [Concomitant]

REACTIONS (2)
  - PRURITUS [None]
  - URTICARIA [None]
